FAERS Safety Report 9377359 (Version 1)
Quarter: 2013Q3

REPORT INFORMATION
  Report Type: Spontaneous
  Country: IT (occurrence: IT)
  Receive Date: 20130701
  Receipt Date: 20130701
  Transmission Date: 20140515
  Serious: Yes (Other)
  Sender: FDA-Public Use
  Company Number: IT-PFIZER INC-2013190114

PATIENT
  Age: 40 Year
  Sex: Female

DRUGS (2)
  1. PANTORC [Suspect]
     Indication: ABDOMINAL PAIN UPPER
     Dosage: 1 DF, UNK
     Route: 042
     Dates: start: 20130210, end: 20130210
  2. ZANTAC [Concomitant]
     Dosage: 150 MG, UNK
     Route: 048

REACTIONS (1)
  - Hypotension [Recovered/Resolved]
